FAERS Safety Report 4931875-5 (Version None)
Quarter: 2006Q1

REPORT INFORMATION
  Report Type: 
  Country: None (occurrence: None)
  Receive Date: 20060303
  Receipt Date: 20050824
  Transmission Date: 20060701
  Serious: Yes (Death, Hospitalization)
  Sender: FDA-Public Use
  Company Number: US-MERCK-0508USA04311

PATIENT
  Age: 53 Year
  Sex: Female

DRUGS (1)
  1. VIOXX [Suspect]
     Route: 048
     Dates: end: 20040704

REACTIONS (13)
  - ARTHRALGIA [None]
  - CATHETER RELATED COMPLICATION [None]
  - COAGULOPATHY [None]
  - DEEP VEIN THROMBOSIS [None]
  - ESCHERICHIA INFECTION [None]
  - FLUID OVERLOAD [None]
  - METRORRHAGIA [None]
  - MYOCARDIAL INFARCTION [None]
  - PERITONITIS [None]
  - PLEURAL EFFUSION [None]
  - SINUSITIS [None]
  - SPLENIC RUPTURE [None]
  - VOMITING [None]
